FAERS Safety Report 25982988 (Version 1)
Quarter: 2025Q4

REPORT INFORMATION
  Report Type: Spontaneous
  Country: EU (occurrence: EU)
  Receive Date: 20251031
  Receipt Date: 20251031
  Transmission Date: 20260118
  Serious: Yes (Hospitalization, Other)
  Sender: HIKMA PHARMACEUTICALS USA INC.
  Company Number: None

PATIENT
  Age: 23 Year
  Sex: Male
  Weight: 59.5 kg

DRUGS (1)
  1. ACYCLOVIR [Suspect]
     Active Substance: ACYCLOVIR
     Indication: Herpes zoster meningoencephalitis
     Dosage: 15 MILLIGRAM/KILOGRAM, QD
     Route: 042
     Dates: start: 20220324

REACTIONS (2)
  - Posterior reversible encephalopathy syndrome [Recovered/Resolved]
  - Acute kidney injury [Recovered/Resolved]

NARRATIVE: CASE EVENT DATE: 20220325
